FAERS Safety Report 23503585 (Version 1)
Quarter: 2024Q1

REPORT INFORMATION
  Report Type: Spontaneous
  Country: IT (occurrence: IT)
  Receive Date: 20240208
  Receipt Date: 20240208
  Transmission Date: 20240409
  Serious: Yes (Life-Threatening, Hospitalization, Other)
  Sender: FDA-Public Use
  Company Number: IT-MINISAL02-967753

PATIENT
  Age: 53 Year
  Sex: Male

DRUGS (1)
  1. DULOXETINE [Suspect]
     Active Substance: DULOXETINE
     Indication: Product used for unknown indication
     Dosage: UNK
     Route: 048

REACTIONS (4)
  - Peritonitis [Unknown]
  - Intestinal perforation [Unknown]
  - Abdominal pain upper [Unknown]
  - Drug abuse [Unknown]

NARRATIVE: CASE EVENT DATE: 20240110
